FAERS Safety Report 22204038 (Version 1)
Quarter: 2023Q2

REPORT INFORMATION
  Report Type: Spontaneous
  Country: US (occurrence: PR)
  Receive Date: 20230412
  Receipt Date: 20230412
  Transmission Date: 20230721
  Serious: No
  Sender: FDA-Public Use
  Company Number: US-PFIZER INC-202300147678

PATIENT
  Age: 67 Year
  Sex: Female

DRUGS (6)
  1. XELJANZ XR [Suspect]
     Active Substance: TOFACITINIB CITRATE
     Dosage: 11 MG, 1X/DAY
     Dates: start: 20200320
  2. METHOTREXATE [Concomitant]
     Active Substance: METHOTREXATE
  3. LATANOPROST [Concomitant]
     Active Substance: LATANOPROST
  4. LODINE [Concomitant]
     Active Substance: ETODOLAC
  5. METFORMIN [Concomitant]
     Active Substance: METFORMIN HYDROCHLORIDE
  6. VITAMINS [Concomitant]
     Active Substance: VITAMINS

REACTIONS (2)
  - Product dose omission in error [Unknown]
  - Memory impairment [Unknown]
